FAERS Safety Report 4704863-1 (Version None)
Quarter: 2005Q2

REPORT INFORMATION
  Report Type: 
  Country: None (occurrence: None)
  Receive Date: 20050629
  Receipt Date: 20050621
  Transmission Date: 20051028
  Serious: Yes (Death)
  Sender: FDA-Public Use
  Company Number: L05-USA-02134-01

PATIENT
  Age: 40 Year
  Sex: Male
  Weight: 84.8226 kg

DRUGS (6)
  1. CITALOPRAM [Suspect]
     Dosage: 20 MG
  2. OLANZAPINE [Suspect]
     Dosage: 10 MG
  3. RISPERIDONE [Concomitant]
  4. CLONAZEPAM [Concomitant]
  5. FAMOTIDINE [Concomitant]
  6. ASPIRIN [Concomitant]

REACTIONS (8)
  - ACCIDENTAL DEATH [None]
  - BRONCHITIS CHRONIC [None]
  - CARDIOMEGALY [None]
  - DRUG INTERACTION [None]
  - DRUG TOXICITY [None]
  - HEPATIC STEATOSIS [None]
  - METABOLIC DISORDER [None]
  - OBESITY [None]
